FAERS Safety Report 8035876-2 (Version None)
Quarter: 2012Q1

REPORT INFORMATION
  Report Type: 
  Country: None (occurrence: None)
  Receive Date: 20120111
  Receipt Date: 20120111
  Transmission Date: 20120608
  Serious: No
  Sender: FDA-Public Use
  Company Number: None

PATIENT
  Age: 31 Year
  Sex: Female
  Weight: 54.431 kg

DRUGS (2)
  1. EXCEDRIN (MIGRAINE) [Suspect]
     Indication: HEADACHE
     Dosage: 1 OR 2 CAPLETS
     Route: 048
     Dates: start: 20111228, end: 20120108
  2. EXCEDRIN (MIGRAINE) [Suspect]
     Indication: PAIN
     Dosage: 1 OR 2 CAPLETS
     Route: 048
     Dates: start: 20111228, end: 20120108

REACTIONS (3)
  - ABDOMINAL PAIN UPPER [None]
  - PRODUCT QUALITY ISSUE [None]
  - HUNGER [None]
